FAERS Safety Report 5061509-3 (Version None)
Quarter: 2006Q3

REPORT INFORMATION
  Report Type: 
  Country: None (occurrence: None)
  Receive Date: 20060703
  Receipt Date: 20060302
  Transmission Date: 20061208
  Serious: No
  Sender: FDA-Public Use
  Company Number: 2006PV009618

PATIENT
  Age: 44 Year
  Sex: Female
  Weight: 92.5338 kg

DRUGS (2)
  1. SYMLIN [Suspect]
     Indication: INSULIN RESISTANT DIABETES
     Dosage: 45 MCG;TID;SC
     Route: 058
     Dates: start: 20060215
  2. HUMALOG PUMP [Concomitant]

REACTIONS (3)
  - HYPOGLYCAEMIA [None]
  - INJECTION SITE PAIN [None]
  - NAUSEA [None]
